FAERS Safety Report 20891302 (Version 1)
Quarter: 2022Q2

REPORT INFORMATION
  Report Type: Report from Study
  Country: US (occurrence: US)
  Receive Date: 20220530
  Receipt Date: 20220530
  Transmission Date: 20220720
  Serious: No
  Sender: FDA-Public Use
  Company Number: US-CELGENE-USA-20210907336

PATIENT
  Age: 71 Year
  Sex: Male
  Weight: 81.64 kg

DRUGS (2)
  1. REVLIMID [Suspect]
     Active Substance: LENALIDOMIDE
     Indication: Plasma cell myeloma
     Dosage: 10 MILLIGRAM, DAILY FOR 21 DAYS
     Route: 048
     Dates: start: 20190701
  2. REVLIMID [Suspect]
     Active Substance: LENALIDOMIDE
     Dosage: 5 MILLIGRAM, DAILY
     Route: 048

REACTIONS (4)
  - Ocular hyperaemia [Unknown]
  - Constipation [Unknown]
  - Eye infection [Unknown]
  - Neuralgia [Recovered/Resolved]
